FAERS Safety Report 12426694 (Version 1)
Quarter: 2016Q2

REPORT INFORMATION
  Report Type: Spontaneous
  Country: US (occurrence: US)
  Receive Date: 20160601
  Receipt Date: 20160601
  Transmission Date: 20160815
  Serious: No
  Sender: FDA-Public Use
  Company Number: US-SEPTODONT-201503002

PATIENT
  Age: 27 Year
  Sex: Female

DRUGS (1)
  1. ZORCAINE [Suspect]
     Active Substance: ARTICAINE HYDROCHLORIDE\EPINEPHRINE BITARTRATE
     Indication: LOCAL ANAESTHESIA
     Dosage: 2-3 CARPULES
     Route: 004

REACTIONS (3)
  - Product quality issue [None]
  - Hypoaesthesia [Recovering/Resolving]
  - Malaise [Recovered/Resolved]
